FAERS Safety Report 7732359-1 (Version None)
Quarter: 2011Q3

REPORT INFORMATION
  Report Type: 
  Country: None (occurrence: None)
  Receive Date: 20110906
  Receipt Date: 20110902
  Transmission Date: 20111222
  Serious: Yes (Hospitalization, Other)
  Sender: FDA-Public Use
  Company Number: FR-PFIZER INC-2011201285

PATIENT
  Age: 74 Year
  Sex: Male

DRUGS (11)
  1. OFLOXACIN [Concomitant]
     Dosage: 200 MG/ 40 ML
  2. ATORVASTATIN CALCIUM [Suspect]
     Dosage: 10 MG, 1X/DAY
     Route: 048
     Dates: end: 20110719
  3. ASPIRIN [Concomitant]
     Dosage: 160 MG
  4. RENAGEL [Suspect]
     Dosage: 800 MG, 3X/DAY
     Route: 048
     Dates: start: 20110713, end: 20110719
  5. AZACTAM [Concomitant]
  6. EMLA [Concomitant]
  7. LERCANIDIPINE [Concomitant]
     Dosage: 10 MG
  8. PANTOPRAZOLE [Suspect]
     Dosage: 20 MG, 1X/DAY
     Route: 048
     Dates: start: 20110713, end: 20110719
  9. TRAMADOL HCL [Suspect]
     Dosage: 1 DF, 3X/DAY
     Route: 042
     Dates: start: 20110715, end: 20110719
  10. REPAGLINIDE [Suspect]
     Dosage: 0.5 MG, 2X/DAY
     Route: 048
     Dates: end: 20110719
  11. TRANSIPEG [Suspect]
     Dosage: 11.8 G, 1X/DAY
     Route: 048
     Dates: start: 20110713, end: 20110719

REACTIONS (3)
  - GAMMA-GLUTAMYLTRANSFERASE INCREASED [None]
  - ASPARTATE AMINOTRANSFERASE INCREASED [None]
  - ALANINE AMINOTRANSFERASE INCREASED [None]
